FAERS Safety Report 4680789-7 (Version None)
Quarter: 2005Q2

REPORT INFORMATION
  Report Type: 
  Country: None (occurrence: None)
  Receive Date: 20050601
  Receipt Date: 20050527
  Transmission Date: 20051028
  Serious: Yes (Life-Threatening, Hospitalization)
  Sender: FDA-Public Use
  Company Number: THQ2005A00478

PATIENT
  Sex: Male

DRUGS (6)
  1. HELICLEAR (LANSOPRAZOLE, CLARITHROMYCIN, AMOXICILLIN) [Suspect]
     Indication: DUODENAL ULCER
     Route: 048
     Dates: start: 20050112, end: 20050119
  2. HELICLEAR (LANSOPRAZOLE, CLARITHROMYCIN, AMOXICILLIN) [Suspect]
     Indication: HELICOBACTER INFECTION
     Route: 048
     Dates: start: 20050112, end: 20050119
  3. ENALAPRIL MALEATE [Suspect]
     Indication: HYPERTENSION
     Dosage: (20 MG)
     Route: 048
     Dates: start: 20020124, end: 20050127
  4. CLOPIDOGREL BISULFATE [Concomitant]
  5. NIFEDIPINE [Concomitant]
  6. ATORVASTATIN CALCIUM [Concomitant]

REACTIONS (3)
  - ACUTE PRERENAL FAILURE [None]
  - DEHYDRATION [None]
  - DIARRHOEA [None]
